FAERS Safety Report 8172941-3 (Version None)
Quarter: 2012Q1

REPORT INFORMATION
  Report Type: 
  Country: None (occurrence: None)
  Receive Date: 20120223
  Receipt Date: 20120216
  Transmission Date: 20120608
  Serious: Yes (Other)
  Sender: FDA-Public Use
  Company Number: DKLU1076955

PATIENT

DRUGS (1)
  1. ONFI [Suspect]
     Indication: LENNOX-GASTAUT SYNDROME

REACTIONS (1)
  - PETIT MAL EPILEPSY [None]
